FAERS Safety Report 8320790-5 (Version None)
Quarter: 2012Q2

REPORT INFORMATION
  Report Type: 
  Country: None (occurrence: None)
  Receive Date: 20120430
  Receipt Date: 20120420
  Transmission Date: 20120825
  Serious: Yes (Hospitalization)
  Sender: FDA-Public Use
  Company Number: PHEH2012US008549

PATIENT
  Sex: Male
  Weight: 82.54 kg

DRUGS (2)
  1. TYLENOL (CAPLET) [Concomitant]
  2. GILENYA [Suspect]
     Dosage: 0.5 MG, QD
     Route: 048

REACTIONS (2)
  - VITAMIN D DECREASED [None]
  - CHEST DISCOMFORT [None]
